FAERS Safety Report 25106464 (Version 1)
Quarter: 2025Q1

REPORT INFORMATION
  Report Type: Spontaneous
  Country: US (occurrence: None)
  Receive Date: 20250321
  Receipt Date: 20250321
  Transmission Date: 20250409
  Serious: Yes (Other)
  Sender: FDA-CTU
  Company Number: None

PATIENT
  Age: 41 Year
  Sex: Male
  Weight: 105.75 kg

DRUGS (7)
  1. QSYMIA [Suspect]
     Active Substance: PHENTERMINE HYDROCHLORIDE\TOPIRAMATE
     Indication: Weight decreased
     Dosage: OTHER QUANTITY : 1 TABLET(S);?FREQUENCY : TWICE A DAY;?
     Route: 048
     Dates: start: 20241011, end: 20241024
  2. LAMOTRIGINE [Concomitant]
     Active Substance: LAMOTRIGINE
  3. LUBIPROSTONE (SINCE REACTION) [Concomitant]
  4. AZELASTINE [Concomitant]
     Active Substance: AZELASTINE
  5. CLONAZEPAM [Concomitant]
     Active Substance: CLONAZEPAM
  6. CETIRIZINE [Concomitant]
     Active Substance: CETIRIZINE HYDROCHLORIDE
  7. OMEPRAZOLE [Concomitant]
     Active Substance: OMEPRAZOLE

REACTIONS (2)
  - Abdominal pain [None]
  - Functional gastrointestinal disorder [None]

NARRATIVE: CASE EVENT DATE: 20241024
